FAERS Safety Report 5641043-X (Version None)
Quarter: 2008Q1

REPORT INFORMATION
  Report Type: 
  Country: None (occurrence: None)
  Receive Date: 20080227
  Receipt Date: 20080218
  Transmission Date: 20080703
  Serious: Yes (Life-Threatening, Hospitalization)
  Sender: FDA-Public Use
  Company Number: JP-ASTRAZENECA-2008SE01000

PATIENT
  Age: 24722 Day
  Sex: Male
  Weight: 50 kg

DRUGS (6)
  1. BLOPRESS [Suspect]
     Indication: HYPERTENSION
     Route: 048
     Dates: end: 20080201
  2. URIEF(SILODOSIN) [Concomitant]
     Indication: BENIGN PROSTATIC HYPERPLASIA
     Route: 048
     Dates: start: 20070101, end: 20080201
  3. MAGNESIUM OXIDE [Concomitant]
     Indication: CONSTIPATION
     Route: 048
     Dates: start: 20070101, end: 20080201
  4. PANTOSIN [Concomitant]
     Indication: CONSTIPATION
     Route: 048
     Dates: start: 20070101, end: 20080201
  5. SENNASID [Concomitant]
     Indication: CONSTIPATION
     Route: 048
     Dates: start: 20070101, end: 20080201
  6. BI SIFROL [Concomitant]
     Indication: PARKINSONISM
     Route: 048
     Dates: start: 20070101, end: 20080201

REACTIONS (2)
  - DEHYDRATION [None]
  - INTERSTITIAL LUNG DISEASE [None]
